FAERS Safety Report 7837567-7 (Version None)
Quarter: 2011Q4

REPORT INFORMATION
  Report Type: 
  Country: None (occurrence: None)
  Receive Date: 20111024
  Receipt Date: 20111007
  Transmission Date: 20120403
  Serious: Yes (Hospitalization)
  Sender: FDA-Public Use
  Company Number: DE-GLAXOSMITHKLINE-D0072426A

PATIENT

DRUGS (11)
  1. AMBRISENTAN [Suspect]
     Indication: PULMONARY ARTERIAL HYPERTENSION
     Dosage: 10 MG, QD
     Route: 065
     Dates: start: 20110209
  2. MARCUMAR [Concomitant]
  3. METOPROLOL SUCCINATE [Concomitant]
  4. INTERFERON BETA NOS [Concomitant]
  5. AMBRISENTAN [Suspect]
     Dosage: 5 MG, QD
     Dates: start: 20101102, end: 20110209
  6. ADCIRCA [Concomitant]
  7. RAMIPRIL [Concomitant]
  8. PRASUGREL [Concomitant]
  9. ASPIRIN [Concomitant]
  10. TORSEMIDE [Concomitant]
  11. CRESTOR [Concomitant]

REACTIONS (3)
  - DIZZINESS [None]
  - HYPOCHROMIC ANAEMIA [None]
  - HAEMOGLOBIN DECREASED [None]
